FAERS Safety Report 9227359 (Version 1)
Quarter: 2013Q1

REPORT INFORMATION
  Report Type: Spontaneous
  Country: US (occurrence: None)
  Receive Date: 20121012
  Receipt Date: 20121012
  Transmission Date: 20140127
  Serious: Yes (Hospitalization)
  Sender: FDA-Public Use
  Company Number: 1000026846

PATIENT
  Age: 26 Year
  Sex: Male

DRUGS (5)
  1. LEXAPRO [Suspect]
     Indication: DEPRESSION
     Dosage: 10MG (10MG, 1 IN 1 D), ORAL
     Route: 048
     Dates: start: 201111
  2. KEPPRA (LEVETIRACETAM) [Concomitant]
  3. ZONEGRAN (ZONISAMIDE) [Concomitant]
  4. VIMPAT (LACOSAMIDE) [Concomitant]
  5. LORAZEPAM (LORAZEPAM) [Concomitant]

REACTIONS (1)
  - Suicide attempt [None]
